FAERS Safety Report 9251296 (Version 1)
Quarter: 2013Q1

REPORT INFORMATION
  Report Type: Spontaneous
  Country: US (occurrence: None)
  Receive Date: 20130305
  Receipt Date: 20130305
  Transmission Date: 20140127
  Serious: Yes (Other)
  Sender: FDA-Public Use
  Company Number: 163-21880-12060143 (0)

PATIENT
  Age: 51 Year
  Sex: Male
  Weight: 104.33 kg

DRUGS (10)
  1. REVLIMID [Suspect]
     Indication: PLASMA CELL MYELOMA
     Dosage: 1 IN 1 D?
     Route: 048
     Dates: start: 20110401
  2. ALLOPURINOL(ALLOPURINOL) (UNKNOWN) [Concomitant]
  3. VITAMIN B6(PYRIDOXINE HYDROCHLORIDE)(UNKNOWN) [Concomitant]
  4. CITALOPRAM(CITALOPRAM)(UNKNOWN) [Concomitant]
  5. NEURONTIN(GABAPENTIN)(UNKNOWN) [Concomitant]
  6. OXYCODONE(OXYCODONE)(UNKNOWN) [Concomitant]
  7. AMBIEN(ZOLPIDEM TARTRATE)(UNKNOWN) [Concomitant]
  8. FOLIC ACID(FOLIC ACID)(UNKNOWN) [Concomitant]
  9. COLCHICINE(COLCHICINE) (UNKNOWN) [Concomitant]
  10. STEROIDS(ANABOLIC STEROIDS)(UNKNOWN) [Concomitant]

REACTIONS (3)
  - White blood cell count decreased [None]
  - Respiratory tract infection [None]
  - Neutropenia [None]
